FAERS Safety Report 16929687 (Version 1)
Quarter: 2019Q4

REPORT INFORMATION
  Report Type: Spontaneous
  Country: CA (occurrence: CA)
  Receive Date: 20191017
  Receipt Date: 20191017
  Transmission Date: 20200122
  Serious: Yes (Other)
  Sender: FDA-Public Use
  Company Number: CA-PFIZER INC-2019445802

PATIENT
  Age: 51 Year
  Sex: Female

DRUGS (14)
  1. ATORVASTATIN CALCIUM. [Suspect]
     Active Substance: ATORVASTATIN CALCIUM
     Indication: XANTHOMA
     Dosage: UNK
  2. EVOLOCUMAB [Suspect]
     Active Substance: EVOLOCUMAB
     Indication: TYPE IIA HYPERLIPIDAEMIA
  3. LODALIS [Suspect]
     Active Substance: COLESEVELAM HYDROCHLORIDE
     Indication: TYPE IIA HYPERLIPIDAEMIA
  4. PRAVASTATIN. [Suspect]
     Active Substance: PRAVASTATIN
     Indication: XANTHOMA
     Dosage: 10 MG, UNK
  5. ROSUVASTATIN. [Suspect]
     Active Substance: ROSUVASTATIN
     Indication: TYPE IIA HYPERLIPIDAEMIA
     Dosage: 10 MG, UNK (1 EVERY 2 DAYS)
  6. EVOLOCUMAB [Suspect]
     Active Substance: EVOLOCUMAB
     Indication: XANTHOMA
     Dosage: 140 MG, UNK
     Route: 058
  7. PRAVASTATIN. [Suspect]
     Active Substance: PRAVASTATIN
     Indication: TYPE IIA HYPERLIPIDAEMIA
  8. REPATHA [Suspect]
     Active Substance: EVOLOCUMAB
     Indication: XANTHOMA
     Dosage: 140 MG, UNK (1 EVERY 2 WEEK(S))
     Route: 058
  9. LODALIS [Suspect]
     Active Substance: COLESEVELAM HYDROCHLORIDE
     Indication: XANTHOMA
     Dosage: UNK
  10. ATORVASTATIN CALCIUM. [Suspect]
     Active Substance: ATORVASTATIN CALCIUM
     Indication: TYPE IIA HYPERLIPIDAEMIA
  11. REPATHA [Suspect]
     Active Substance: EVOLOCUMAB
     Indication: TYPE IIA HYPERLIPIDAEMIA
  12. ROSUVASTATIN. [Suspect]
     Active Substance: ROSUVASTATIN
     Indication: XANTHOMA
     Dosage: 10 MG, UNK (1 EVERY 2 DAYS)
     Route: 048
  13. EZETIMIBE. [Suspect]
     Active Substance: EZETIMIBE
     Indication: TYPE IIA HYPERLIPIDAEMIA
  14. EZETIMIBE. [Suspect]
     Active Substance: EZETIMIBE
     Indication: XANTHOMA
     Dosage: 10 MG, UNK
     Route: 065

REACTIONS (2)
  - Drug ineffective [Unknown]
  - Drug intolerance [Unknown]
